FAERS Safety Report 5597904-3 (Version None)
Quarter: 2007Q4

REPORT INFORMATION
  Report Type: 
  Country: None (occurrence: None)
  Receive Date: 20071221
  Receipt Date: 20071017
  Transmission Date: 20080405
  Serious: Yes (Life-Threatening, Other)
  Sender: FDA-Public Use
  Company Number: PHEH2007US13412

PATIENT
  Age: 8 Year
  Sex: Female
  Weight: 26.3 kg

DRUGS (3)
  1. FOCALIN XR [Suspect]
     Indication: ATTENTION DEFICIT/HYPERACTIVITY DISORDER
     Dosage: 5 MG, ORAL
     Route: 048
     Dates: start: 20071006, end: 20071006
  2. FLOVENT [Concomitant]
  3. XOPENEX [Concomitant]

REACTIONS (1)
  - CONVULSION [None]
